FAERS Safety Report 24218165 (Version 4)
Quarter: 2024Q3

REPORT INFORMATION
  Report Type: Spontaneous
  Country: US (occurrence: US)
  Receive Date: 20240816
  Receipt Date: 20240905
  Transmission Date: 20241016
  Serious: No
  Sender: PFIZER
  Company Number: US-PFIZER INC-PV202400106288

PATIENT
  Age: 72 Year
  Sex: Female

DRUGS (2)
  1. TUKYSA [Suspect]
     Active Substance: TUCATINIB
     Dosage: 600 MG, DAILY (4 TABLETS)
  2. TUKYSA [Suspect]
     Active Substance: TUCATINIB
     Dosage: (1 TABLET IN THE MORNING AND 1 EVENING)/150 MG; 1 TABLET TWICE DAILY

REACTIONS (1)
  - Diarrhoea [Unknown]
